FAERS Safety Report 6315860-7 (Version None)
Quarter: 2009Q3

REPORT INFORMATION
  Report Type: 
  Country: None (occurrence: None)
  Receive Date: 20090820
  Receipt Date: 20090603
  Transmission Date: 20100115
  Serious: No
  Sender: FDA-Public Use
  Company Number: A0780760A

PATIENT
  Age: 69 Year
  Sex: Male
  Weight: 84 kg

DRUGS (1)
  1. BEXXAR [Suspect]
     Indication: MANTLE CELL LYMPHOMA
     Dosage: 97.8U UNKNOWN
     Route: 042
     Dates: start: 20090331, end: 20090331

REACTIONS (1)
  - PAIN [None]
